FAERS Safety Report 14398146 (Version 3)
Quarter: 2018Q1

REPORT INFORMATION
  Report Type: Spontaneous
  Country: US (occurrence: US)
  Receive Date: 20180116
  Receipt Date: 20180309
  Transmission Date: 20180509
  Serious: Yes (Other)
  Sender: FDA-Public Use
  Company Number: US-ALLERGAN-1769014US

PATIENT
  Age: 77 Year
  Sex: Female

DRUGS (3)
  1. REFRESH P.M. [Concomitant]
     Active Substance: MINERAL OIL\PETROLATUM
     Dosage: UNK
     Route: 047
  2. REFRESH LACRI-LUBE [Suspect]
     Active Substance: MINERAL OIL\PETROLATUM
     Indication: DRY EYE
     Dosage: UNK
     Route: 047
     Dates: end: 201710
  3. REFRESH TEARS [Concomitant]
     Active Substance: CARBOXYMETHYLCELLULOSE SODIUM
     Dosage: UNK
     Route: 047

REACTIONS (6)
  - Drug dose omission [Unknown]
  - Ankle fracture [Unknown]
  - Breast cancer [Unknown]
  - Product availability issue [Unknown]
  - Macular degeneration [Unknown]
  - Eye pain [Unknown]
